FAERS Safety Report 8815993 (Version 1)
Quarter: 2012Q4

REPORT INFORMATION
  Report Type: 
  Country: US (occurrence: US)
  Receive Date: 20120928
  Receipt Date: 20120928
  Transmission Date: 20130627
  Serious: No
  Sender: FDA-Public Use
  Company Number: US-VIIV HEALTHCARE LIMITED-A0971350A

PATIENT
  Sex: Female

DRUGS (4)
  1. EPZICOM [Suspect]
     Indication: HIV INFECTION
     Route: 048
  2. CUBICIN [Concomitant]
  3. ASPIRIN [Concomitant]
  4. REYATAZ [Concomitant]

REACTIONS (4)
  - Hypersensitivity [Recovering/Resolving]
  - Nausea [Unknown]
  - Vomiting [Unknown]
  - Pyrexia [Unknown]
